FAERS Safety Report 8475617-8 (Version None)
Quarter: 2012Q2

REPORT INFORMATION
  Report Type: 
  Country: None (occurrence: None)
  Receive Date: 20120529
  Receipt Date: 20110809
  Transmission Date: 20120825
  Serious: No
  Sender: FDA-Public Use
  Company Number: 2011PV000046

PATIENT
  Sex: Female

DRUGS (2)
  1. DEPOCYT [Suspect]
     Indication: METASTASES TO MENINGES
     Dosage: 50 MG; ;INTH
     Route: 037
     Dates: start: 20110501, end: 20110718
  2. DEXAMETHASONE [Concomitant]

REACTIONS (4)
  - DIZZINESS [None]
  - VOMITING [None]
  - NAUSEA [None]
  - HEADACHE [None]
